FAERS Safety Report 13780041 (Version 1)
Quarter: 2017Q3

REPORT INFORMATION
  Report Type: Spontaneous
  Country: JP (occurrence: JP)
  Receive Date: 20170723
  Receipt Date: 20170723
  Transmission Date: 20171127
  Serious: Yes (Hospitalization, Other)
  Sender: FDA-Public Use
  Company Number: JP-MYLANLABS-2017M1042262

PATIENT

DRUGS (2)
  1. POTASSIUM IODIDE. [Suspect]
     Active Substance: POTASSIUM IODIDE
     Indication: RASH
     Dosage: 900 MG, QD
     Route: 065
  2. PREDNISOLONE. [Suspect]
     Active Substance: PREDNISOLONE
     Indication: RASH
     Dosage: 10 MG, QD
     Route: 048

REACTIONS (2)
  - Hypothyroidism [Unknown]
  - Silent thyroiditis [Unknown]
